FAERS Safety Report 7570607-1 (Version None)
Quarter: 2011Q2

REPORT INFORMATION
  Report Type: 
  Country: None (occurrence: None)
  Receive Date: 20110624
  Receipt Date: 20110414
  Transmission Date: 20111010
  Serious: No
  Sender: FDA-Public Use
  Company Number: US-ALLERGAN-1105245US

PATIENT
  Age: 43 Year
  Sex: Female

DRUGS (1)
  1. LATISSE [Suspect]
     Indication: GROWTH OF EYELASHES
     Dosage: 1 GTT, UNK
     Dates: start: 20110315

REACTIONS (5)
  - SECRETION DISCHARGE [None]
  - WRONG TECHNIQUE IN DRUG USAGE PROCESS [None]
  - OCULAR HYPERAEMIA [None]
  - EYE PRURITUS [None]
  - EYE IRRITATION [None]
